FAERS Safety Report 9595520 (Version 2)
Quarter: 2013Q4

REPORT INFORMATION
  Report Type: Spontaneous
  Country: US (occurrence: US)
  Receive Date: 20131004
  Receipt Date: 20131021
  Transmission Date: 20140711
  Serious: Yes (Hospitalization, Other)
  Sender: FDA-Public Use
  Company Number: US-009507513-1309USA012897

PATIENT
  Age: 79 Year
  Sex: Female

DRUGS (5)
  1. SIMVASTATIN [Suspect]
     Dosage: UNK
     Route: 048
  2. ZOCOR [Suspect]
     Indication: BLOOD CHOLESTEROL INCREASED
     Dosage: 40 MG, TIW
     Route: 048
     Dates: start: 20130306
  3. LEVOTHYROXINE SODIUM [Concomitant]
     Dosage: 88 MG, QD
     Route: 048
  4. TOPIRAMATE [Concomitant]
     Dosage: 25 MG, BID
  5. CLONAZEPAM [Concomitant]
     Dosage: 0.5 MG, PRN

REACTIONS (21)
  - Cerebrovascular accident [Unknown]
  - Myocardial infarction [Unknown]
  - Hip arthroplasty [Not Recovered/Not Resolved]
  - Arterial therapeutic procedure [Unknown]
  - Tinnitus [Not Recovered/Not Resolved]
  - Blood pressure increased [Not Recovered/Not Resolved]
  - Local swelling [Not Recovered/Not Resolved]
  - Dyspnoea [Not Recovered/Not Resolved]
  - Cardiovascular insufficiency [Not Recovered/Not Resolved]
  - Pain in extremity [Not Recovered/Not Resolved]
  - Chest pain [Not Recovered/Not Resolved]
  - Underdose [Unknown]
  - Blood cholesterol increased [Unknown]
  - Vomiting [Unknown]
  - Carotid artery disease [Unknown]
  - Diplopia [Unknown]
  - Drug administration error [Unknown]
  - Inappropriate schedule of drug administration [Unknown]
  - Gait disturbance [Unknown]
  - Chest pain [Unknown]
  - Blood pressure increased [Unknown]
